FAERS Safety Report 12087428 (Version 1)
Quarter: 2016Q1

REPORT INFORMATION
  Report Type: Spontaneous
  Country: US (occurrence: US)
  Receive Date: 20160217
  Receipt Date: 20160217
  Transmission Date: 20160526
  Serious: No
  Sender: FDA-Public Use
  Company Number: US-ALLERGAN-1516974US

PATIENT
  Age: 66 Year
  Sex: Male

DRUGS (2)
  1. RESTASIS [Suspect]
     Active Substance: CYCLOSPORINE
     Indication: DRY EYE
     Dosage: UNK, UNKNOWN
     Dates: end: 20150821
  2. REFRESH PM                         /01210201/ [Concomitant]
     Indication: DRY EYE
     Dosage: UNK, PRN
     Route: 047

REACTIONS (3)
  - Eye contusion [Not Recovered/Not Resolved]
  - Ocular hyperaemia [Not Recovered/Not Resolved]
  - Eye irritation [Not Recovered/Not Resolved]

NARRATIVE: CASE EVENT DATE: 20150821
